FAERS Safety Report 5171105-5 (Version None)
Quarter: 2006Q4

REPORT INFORMATION
  Report Type: 
  Country: None (occurrence: None)
  Receive Date: 20061213
  Receipt Date: 20061205
  Transmission Date: 20070319
  Serious: Yes (Death)
  Sender: FDA-Public Use
  Company Number: ES-GLAXOSMITHKLINE-B0450199A

PATIENT

DRUGS (3)
  1. LAMIVUDINE [Suspect]
     Route: 065
  2. ZIDOVUDINE [Suspect]
     Route: 065
  3. LOPINAVIR + RITONAVIR [Suspect]
     Route: 065

REACTIONS (1)
  - HEPATIC FAILURE [None]
